FAERS Safety Report 12641460 (Version 2)
Quarter: 2016Q3

REPORT INFORMATION
  Report Type: Spontaneous
  Country: US (occurrence: US)
  Receive Date: 20160810
  Receipt Date: 20160929
  Transmission Date: 20161109
  Serious: Yes (Other)
  Sender: FDA-Public Use
  Company Number: US-BAYER-2016-153336

PATIENT
  Age: 64 Year
  Sex: Female

DRUGS (5)
  1. MOXIFLOXACIN. [Concomitant]
     Active Substance: MOXIFLOXACIN
     Dosage: UNK
  2. AZITHROMYCIN ANHYDROUS. [Concomitant]
     Active Substance: AZITHROMYCIN ANHYDROUS
     Dosage: UNK
  3. CIPROFLOXACIN. [Suspect]
     Active Substance: CIPROFLOXACIN
     Indication: ENTEROBACTER INFECTION
     Dosage: UNK
  4. VANCOMYCIN [Concomitant]
     Active Substance: VANCOMYCIN
     Dosage: UNK
  5. PIPERACILLIN AND TAZOBACTAM [Suspect]
     Active Substance: PIPERACILLIN SODIUM\TAZOBACTAM SODIUM
     Indication: ENTEROBACTER INFECTION
     Dosage: UNK

REACTIONS (2)
  - Factor V deficiency [Recovering/Resolving]
  - Embolism venous [Recovered/Resolved]
